FAERS Safety Report 6526448-7 (Version None)
Quarter: 2010Q1

REPORT INFORMATION
  Report Type: 
  Country: None (occurrence: None)
  Receive Date: 20100105
  Receipt Date: 20091229
  Transmission Date: 20100710
  Serious: Yes (Other)
  Sender: FDA-Public Use
  Company Number: US-BAYER-200944017NA

PATIENT
  Age: 49 Year
  Sex: Male

DRUGS (2)
  1. LEVITRA [Suspect]
     Indication: ERECTILE DYSFUNCTION
     Dosage: TOTAL DAILY DOSE: 10 MG  UNIT DOSE: 10 MG
     Route: 048
     Dates: start: 20091219, end: 20091219
  2. TRICOR [Concomitant]

REACTIONS (3)
  - VISION BLURRED [None]
  - VISUAL BRIGHTNESS [None]
  - VISUAL IMPAIRMENT [None]
